FAERS Safety Report 9025973 (Version 2)
Quarter: 2014Q2

REPORT INFORMATION
  Report Type: Report from Study
  Country: CA (occurrence: CA)
  Receive Date: 20130122
  Receipt Date: 20140418
  Transmission Date: 20141212
  Serious: Yes (Hospitalization, Other)
  Sender: FDA-Public Use
  Company Number: CA-ROCHE-1181380

PATIENT
  Age: 25 Year
  Sex: Male
  Weight: 61 kg

DRUGS (8)
  1. ACTEMRA [Suspect]
     Indication: RHEUMATOID ARTHRITIS
     Route: 042
     Dates: start: 20111020
  2. ACTEMRA [Suspect]
     Route: 042
     Dates: start: 20111117
  3. ACTEMRA [Suspect]
     Route: 042
     Dates: start: 20111215
  4. ACTEMRA [Suspect]
     Route: 042
     Dates: start: 20120112
  5. ACTEMRA [Suspect]
     Route: 042
     Dates: start: 20120209
  6. ACTEMRA [Suspect]
     Dosage: DOSE CONTINUED AT 8MG/KG.
     Route: 042
     Dates: start: 20120308
  7. ACTEMRA [Suspect]
     Route: 065
     Dates: start: 20130116
  8. CORTISONE [Concomitant]

REACTIONS (4)
  - Joint destruction [Unknown]
  - Tibia fracture [Unknown]
  - Arthralgia [Recovering/Resolving]
  - Fall [Unknown]
